FAERS Safety Report 9337416 (Version 1)
Quarter: 2013Q2

REPORT INFORMATION
  Report Type: Spontaneous
  Country: US (occurrence: US)
  Receive Date: 20130607
  Receipt Date: 20130607
  Transmission Date: 20140414
  Serious: Yes (Hospitalization, Other)
  Sender: FDA-Public Use
  Company Number: US-UCBSA-088178

PATIENT
  Age: 50 Year
  Sex: Female

DRUGS (4)
  1. CIMZIA [Suspect]
  2. HUMIRA [Concomitant]
  3. REMICADE [Concomitant]
  4. PREDNISONE [Concomitant]

REACTIONS (6)
  - Crohn^s disease [Unknown]
  - Perineal injury [Recovered/Resolved]
  - Pyrexia [Unknown]
  - Eye disorder [Recovered/Resolved]
  - Metastatic cutaneous Crohn^s disease [Recovered/Resolved]
  - Drug ineffective [Unknown]
